FAERS Safety Report 9207616 (Version 1)
Quarter: 2013Q2

REPORT INFORMATION
  Report Type: Spontaneous
  Country: US (occurrence: US)
  Receive Date: 20130403
  Receipt Date: 20130403
  Transmission Date: 20140414
  Serious: No
  Sender: FDA-Public Use
  Company Number: US-BAYER-2013-042368

PATIENT
  Age: 55 Year
  Sex: Female

DRUGS (1)
  1. CLIMARA [Suspect]
     Dosage: 25 MG, QD
     Route: 062
     Dates: start: 201301

REACTIONS (4)
  - Nasal congestion [None]
  - Sinus disorder [None]
  - Gastrooesophageal reflux disease [None]
  - Wheezing [None]
